FAERS Safety Report 13674666 (Version 1)
Quarter: 2017Q2

REPORT INFORMATION
  Report Type: Spontaneous
  Country: PT (occurrence: PT)
  Receive Date: 20170621
  Receipt Date: 20170621
  Transmission Date: 20170830
  Serious: Yes (Hospitalization, Disabling)
  Sender: FDA-Public Use
  Company Number: PT-MYLANLABS-2017M1036466

PATIENT

DRUGS (3)
  1. FENTANYL. [Suspect]
     Active Substance: FENTANYL
     Dosage: TRANSMUCOSAL FENTANYL 200 MG
  2. FENTANYL. [Suspect]
     Active Substance: FENTANYL
     Dosage: ESCALATED TO FENTANYL 75 MCG/HOUR
     Route: 062
  3. FENTANYL. [Suspect]
     Active Substance: FENTANYL
     Indication: PAIN
     Dosage: 50 MCG/HR
     Route: 062

REACTIONS (3)
  - Vomiting [Unknown]
  - Pain [Recovered/Resolved]
  - Nausea [Unknown]
